FAERS Safety Report 13361873 (Version 1)
Quarter: 2017Q1

REPORT INFORMATION
  Report Type: Spontaneous
  Country: US (occurrence: US)
  Receive Date: 20170323
  Receipt Date: 20170323
  Transmission Date: 20170429
  Serious: No
  Sender: FDA-Public Use
  Company Number: US-TEVA-744701USA

PATIENT
  Age: 65 Year
  Sex: Male

DRUGS (1)
  1. QNASL [Suspect]
     Active Substance: BECLOMETHASONE DIPROPIONATE

REACTIONS (2)
  - Accidental exposure to product [Unknown]
  - Mydriasis [Recovered/Resolved]
